FAERS Safety Report 7337072-0 (Version None)
Quarter: 2011Q1

REPORT INFORMATION
  Report Type: 
  Country: None (occurrence: None)
  Receive Date: 20110308
  Receipt Date: 20101213
  Transmission Date: 20110831
  Serious: Yes (Death, Life-Threatening, Hospitalization, Other)
  Sender: FDA-Public Use
  Company Number: LY-BAYER-2010-002812

PATIENT
  Age: 81 Year
  Sex: Male
  Weight: 58 kg

DRUGS (8)
  1. ENALAPRIL MALEATE [Concomitant]
     Dosage: 10 MG, UNK
     Dates: start: 20100830
  2. ATENOLOL [Concomitant]
     Indication: HYPERTENSION
     Dosage: 50 MG, QD
     Route: 048
     Dates: start: 20040101, end: 20101115
  3. NEXAVAR [Suspect]
     Dosage: 400 MG, UNK
     Dates: start: 20100901, end: 20100924
  4. TIMOLOL [Concomitant]
     Indication: GLAUCOMA
     Dosage: UNK
     Dates: start: 20050101, end: 20101115
  5. NEXAVAR [Suspect]
     Indication: HEPATIC NEOPLASM MALIGNANT
     Dosage: 400 MG, BID
     Route: 048
     Dates: start: 20100801, end: 20100830
  6. NEXAVAR [Suspect]
     Dosage: 400 MG, UNK
     Dates: start: 20100924, end: 20101017
  7. ASPIRIN [Concomitant]
     Dosage: 75 MG, QD
     Dates: start: 20040101, end: 20100808
  8. PANADOL [Concomitant]
     Dosage: 500 MG, BID
     Dates: start: 20100927

REACTIONS (2)
  - ASCITES [None]
  - PERITONITIS BACTERIAL [None]
